FAERS Safety Report 9552477 (Version 1)
Quarter: 2013Q3

REPORT INFORMATION
  Report Type: Spontaneous
  Country: US (occurrence: None)
  Receive Date: 20130729
  Receipt Date: 20130729
  Transmission Date: 20140515
  Serious: Yes (Other)
  Sender: FDA-Public Use
  Company Number: 1303USA001465

PATIENT
  Age: 61 Year
  Sex: Male
  Weight: 97.1 kg

DRUGS (17)
  1. REBETOL (RIBAVIRIN) CAPSULE, 200MG [Suspect]
     Indication: HEPATITIS C
     Route: 048
     Dates: start: 20090102, end: 20091204
  2. PEGASYS (PEGINTERFERON ALFA-2A) [Suspect]
     Indication: HEPATITIS C
     Dosage: UNK
  3. VICTRELIS (BOCEPREVIR) CAPSULE, 200MG [Suspect]
     Indication: HEPATITIS C
     Dosage: 4 DF, Q8H WITH LIGHT MEAL OR SNAK; 360;7, ORAL
     Route: 048
     Dates: start: 20130304
  4. COMPAZINE (PROCHLORPERAZINE MALEATE) [Concomitant]
  5. ZETIA 9EZETIMIBE) [Concomitant]
  6. METOPROLOL SUCCINATE [Concomitant]
  7. OMEPRAZOLE [Concomitant]
  8. BENICAR HCT (HYDROCHLOROTHIAZIDE, OLMESARTAN MEDOXOMIL) (TABLET) (HYDROCHLOROTHIAZIDE, OLMESARTAN MEDOXOMIL) [Concomitant]
  9. JANUVIA (SITAGLIPTIN PHOSPHATE) [Concomitant]
  10. ESTER-C (CALCIUM ASCORBATE) [Concomitant]
  11. MILK THISTLE [Concomitant]
  12. NAPROXEN [Concomitant]
  13. ULORIC (FEBUXOSTAT) [Concomitant]
  14. COLCRYS (COLCHICINE) [Concomitant]
  15. MAGNESIUM [Concomitant]
  16. BIOTIN [Concomitant]
  17. SYNTHROID (LEVOTHYROXINE SODIUM) [Concomitant]

REACTIONS (10)
  - Drug ineffective [None]
  - Leukopenia [None]
  - Haemoglobin decreased [None]
  - Fatigue [None]
  - Nausea [None]
  - Headache [None]
  - Dysgeusia [None]
  - Anaemia [None]
  - White blood cell count decreased [None]
  - Anaemia [None]
